FAERS Safety Report 11290220 (Version 2)
Quarter: 2015Q3

REPORT INFORMATION
  Report Type: Spontaneous
  Country: AU (occurrence: AU)
  Receive Date: 20150721
  Receipt Date: 20150722
  Transmission Date: 20151125
  Serious: Yes (Other)
  Sender: FDA-Public Use
  Company Number: AU-ELI_LILLY_AND_COMPANY-AU201507003320

PATIENT
  Age: 31 Year
  Sex: Female
  Weight: 63 kg

DRUGS (4)
  1. ALBUTEROL                          /00139501/ [Concomitant]
     Active Substance: ALBUTEROL
     Indication: ASTHMA
     Dosage: UNK, PRN
     Route: 065
  2. VENTOLIN [Concomitant]
     Active Substance: ALBUTEROL SULFATE
     Indication: ASTHMA
     Dosage: UNK, PRN
     Route: 065
  3. CYMBALTA [Suspect]
     Active Substance: DULOXETINE HYDROCHLORIDE
     Dosage: 60 MG, UNKNOWN
     Route: 065
     Dates: end: 20150129
  4. CYMBALTA [Suspect]
     Active Substance: DULOXETINE HYDROCHLORIDE
     Indication: PRODUCT USED FOR UNKNOWN INDICATION
     Dosage: 30 MG, UNKNOWN
     Route: 065
     Dates: start: 20150114

REACTIONS (15)
  - Feeling abnormal [Recovering/Resolving]
  - Irritability [Recovering/Resolving]
  - Fatigue [Recovering/Resolving]
  - Apathy [Recovering/Resolving]
  - Mood swings [Recovering/Resolving]
  - Sleep disorder [Recovering/Resolving]
  - Crying [Recovering/Resolving]
  - Depression [Recovering/Resolving]
  - Suicidal ideation [Recovering/Resolving]
  - Feeling jittery [Recovering/Resolving]
  - Drug withdrawal syndrome [Recovering/Resolving]
  - Fear [Recovering/Resolving]
  - Mania [Recovering/Resolving]
  - Insomnia [Recovering/Resolving]
  - Disturbance in attention [Recovering/Resolving]

NARRATIVE: CASE EVENT DATE: 20150130
